FAERS Safety Report 4407507-1 (Version None)
Quarter: 2004Q3

REPORT INFORMATION
  Report Type: 
  Country: None (occurrence: None)
  Receive Date: 20040721
  Receipt Date: 20040712
  Transmission Date: 20050211
  Serious: Yes (Death, Other)
  Sender: FDA-Public Use
  Company Number: 2004040863

PATIENT
  Age: 60 Year
  Sex: Male
  Weight: 98 kg

DRUGS (9)
  1. VIAGRA [Suspect]
     Indication: ERECTILE DYSFUNCTION
     Dosage: (100 MG, AS NEEDED), ORAL
     Route: 048
     Dates: start: 20030601
  2. BETA BLOCKING AGENTS          (BETA BLOCKING AGENTS) [Concomitant]
  3. METFORMIN HCL [Concomitant]
  4. CELIPROLOL (CELIPROLOL) [Concomitant]
  5. AMLODIPINE [Concomitant]
  6. CIPROFIBRATE (CIPROFIBRATE) [Concomitant]
  7. ACETYLSALICYLIC ACID (ACETYLSALICYLIC ACID) X [Concomitant]
  8. GLICLAZIDE (GLICLAZIDE) [Concomitant]
  9. GLYERYL TRINITRATE (GLYCERYL TRINITRATE) [Concomitant]

REACTIONS (1)
  - CIRCULATORY COLLAPSE [None]
